FAERS Safety Report 6195613-3 (Version None)
Quarter: 2009Q2

REPORT INFORMATION
  Report Type: 
  Country: None (occurrence: None)
  Receive Date: 20090519
  Receipt Date: 20090511
  Transmission Date: 20091009
  Serious: Yes (Hospitalization)
  Sender: FDA-Public Use
  Company Number: PHHY2009JP18685

PATIENT
  Age: 81 Year
  Sex: Male

DRUGS (10)
  1. VOLTAREN [Suspect]
     Indication: NASOPHARYNGITIS
     Dosage: 75 MG DAILY
     Route: 048
     Dates: start: 20090423
  2. MEIACT [Concomitant]
     Indication: NASOPHARYNGITIS
     Dosage: 300 MG, UNK
     Route: 048
     Dates: start: 20090423, end: 20090428
  3. ALLELOCK [Concomitant]
     Indication: NASOPHARYNGITIS
     Dosage: 10 MG, UNK
     Route: 048
     Dates: start: 20090423, end: 20090428
  4. PL [Concomitant]
     Indication: NASOPHARYNGITIS
     Dosage: 3 G, UNK
     Route: 048
     Dates: start: 20090423, end: 20090428
  5. CYTOTEC [Concomitant]
     Indication: NASOPHARYNGITIS
     Dosage: 300 UG
     Route: 048
     Dates: start: 20090423, end: 20090503
  6. SELBEX [Concomitant]
     Dosage: UNK
     Dates: start: 20090201
  7. MUCOSOLVAN [Concomitant]
     Dosage: UNK
     Dates: start: 20090201
  8. MUCODYNE [Concomitant]
     Dosage: UNK
     Dates: start: 20090201
  9. MICARDIS [Concomitant]
     Dosage: UNK
     Dates: start: 20090201
  10. CONIEL [Concomitant]
     Dosage: UNK
     Dates: start: 20090201

REACTIONS (6)
  - ALANINE AMINOTRANSFERASE INCREASED [None]
  - ASPARTATE AMINOTRANSFERASE INCREASED [None]
  - BLOOD LACTATE DEHYDROGENASE INCREASED [None]
  - GAMMA-GLUTAMYLTRANSFERASE INCREASED [None]
  - HAEMORRHAGIC DISORDER [None]
  - JAUNDICE [None]
